FAERS Safety Report 5708316-3 (Version None)
Quarter: 2008Q2

REPORT INFORMATION
  Report Type: 
  Country: None (occurrence: None)
  Receive Date: 20080414
  Receipt Date: 20080328
  Transmission Date: 20081010
  Serious: Yes (Other)
  Sender: FDA-Public Use
  Company Number: JPI-P-003354

PATIENT
  Sex: Female

DRUGS (3)
  1. LUVOX [Suspect]
     Indication: DEPRESSION
     Dosage: 25 MG, ORAL
     Route: 048
  2. CLOMIPRAMINE HCL [Concomitant]
  3. AMITRIPTLINE HCL [Concomitant]

REACTIONS (3)
  - ACTIVATION SYNDROME [None]
  - AGITATION [None]
  - HOMICIDAL IDEATION [None]
